FAERS Safety Report 12066229 (Version 2)
Quarter: 2019Q2

REPORT INFORMATION
  Report Type: Spontaneous
  Country: US (occurrence: US)
  Receive Date: 20160210
  Receipt Date: 20190614
  Transmission Date: 20190711
  Serious: No
  Sender: FDA-Public Use
  Company Number: US-JNJFOC-20160112097

PATIENT
  Age: 34 Year
  Sex: Male

DRUGS (1)
  1. RISPERDAL [Suspect]
     Active Substance: RISPERIDONE
     Indication: SCHIZOPHRENIA
     Route: 048
     Dates: start: 20100630, end: 20100805

REACTIONS (4)
  - Enuresis [Unknown]
  - Salivary hypersecretion [Unknown]
  - Gynaecomastia [Unknown]
  - Fatigue [Unknown]

NARRATIVE: CASE EVENT DATE: 201007
